FAERS Safety Report 16010089 (Version 2)
Quarter: 2019Q1

REPORT INFORMATION
  Report Type: Report from Study
  Country: None (occurrence: AU)
  Receive Date: 20190225
  Receipt Date: 20190327
  Transmission Date: 20190418
  Serious: Yes (Hospitalization, Other)
  Sender: FDA-Public Use
  Company Number: AU-ABBVIE-19K-008-2678567-00

PATIENT
  Sex: Male

DRUGS (1)
  1. HUMIRA [Suspect]
     Active Substance: ADALIMUMAB
     Indication: CROHN^S DISEASE
     Route: 058
     Dates: start: 20180112

REACTIONS (5)
  - Skin laceration [Unknown]
  - Fall [Recovering/Resolving]
  - Skin graft [Unknown]
  - Surgery [Unknown]
  - Renal failure [Unknown]
